FAERS Safety Report 8136734-5 (Version None)
Quarter: 2012Q1

REPORT INFORMATION
  Report Type: 
  Country: None (occurrence: None)
  Receive Date: 20120214
  Receipt Date: 20120210
  Transmission Date: 20120608
  Serious: Yes (Other)
  Sender: FDA-Public Use
  Company Number: US-PFIZER INC-2012038029

PATIENT

DRUGS (1)
  1. XANAX [Suspect]
     Dosage: UNK
     Dates: start: 19850101

REACTIONS (5)
  - FALL [None]
  - BACK INJURY [None]
  - SPINAL DISORDER [None]
  - HEARING IMPAIRED [None]
  - NECK INJURY [None]
